FAERS Safety Report 5908391-7 (Version None)
Quarter: 2008Q3

REPORT INFORMATION
  Report Type: 
  Country: None (occurrence: None)
  Receive Date: 20080930
  Receipt Date: 20080916
  Transmission Date: 20090109
  Serious: Yes (Hospitalization)
  Sender: FDA-Public Use
  Company Number: WAES 0808USA04055

PATIENT
  Age: 71 Year
  Sex: Female
  Weight: 68.9467 kg

DRUGS (29)
  1. CAP VORINOSTAT UNK [Suspect]
     Indication: ACUTE MYELOID LEUKAEMIA
     Dosage: 400 MG/DAILY/PO
     Route: 048
     Dates: start: 20080313, end: 20080326
  2. CAP VORINOSTAT UNK [Suspect]
     Indication: ACUTE MYELOID LEUKAEMIA
     Dosage: 400 MG/DAILY/PO
     Route: 048
     Dates: start: 20080410, end: 20080423
  3. INFUSION (FORM) DECITABINE [Suspect]
     Indication: ACUTE MYELOID LEUKAEMIA
     Dosage: 35 MG/DAILY/IV 34.8 MG/DAILY/IV 34 MG/DAILY/IV
     Route: 042
     Dates: start: 20080308, end: 20080312
  4. INFUSION (FORM) DECITABINE [Suspect]
     Indication: ACUTE MYELOID LEUKAEMIA
     Dosage: 35 MG/DAILY/IV 34.8 MG/DAILY/IV 34 MG/DAILY/IV
     Route: 042
     Dates: start: 20080405, end: 20080409
  5. INFUSION (FORM) DECITABINE [Suspect]
     Indication: ACUTE MYELOID LEUKAEMIA
     Dosage: 35 MG/DAILY/IV 34.8 MG/DAILY/IV 34 MG/DAILY/IV
     Route: 042
     Dates: start: 20080505, end: 20080507
  6. LOTEMAX [Concomitant]
  7. ACETAMINOPHEN [Concomitant]
  8. ACYCLOVIR SODIUM [Concomitant]
  9. ALLOPURINOL [Concomitant]
  10. BENZOCAINE [Concomitant]
  11. BISOPROLOL FUMARATE (+) HYDROCHL [Concomitant]
  12. CALCIUM (UNSPECIFIED) [Concomitant]
  13. CLOTRIMAZOLE [Concomitant]
  14. DIPHENHYDRAMINE HYDROCHLORIDE [Concomitant]
  15. DOCUSATE SODIUM [Concomitant]
  16. DOXYCYCLINE [Concomitant]
  17. GEMFIBROZIL [Concomitant]
  18. HYDROXYUREA [Concomitant]
  19. LORAZEPAM [Concomitant]
  20. OMEGA-3 MARINE TRIGLYCERIDES [Concomitant]
  21. OMEPRAZOLE [Concomitant]
  22. ONDANSETRON [Concomitant]
  23. OXYCODONE HCL [Concomitant]
  24. PAROXETINE HCL [Concomitant]
  25. POTASSIUM CHLORIDE [Concomitant]
  26. SENNOSIDES [Concomitant]
  27. VITAMIN D (UNSPECIFIED) [Concomitant]
  28. AVELOX [Concomitant]
  29. COMPAZINE [Concomitant]

REACTIONS (16)
  - ASTHENIA [None]
  - BLOOD CREATININE INCREASED [None]
  - CONSTIPATION [None]
  - DIARRHOEA [None]
  - FATIGUE [None]
  - HAEMATURIA [None]
  - HEADACHE [None]
  - HYPERGLYCAEMIA [None]
  - HYPOAESTHESIA [None]
  - NAUSEA [None]
  - ORAL DISORDER [None]
  - THROMBOCYTOPENIA [None]
  - URINARY TRACT INFECTION [None]
  - VAGINAL HAEMORRHAGE [None]
  - VISION BLURRED [None]
  - VOMITING [None]
